FAERS Safety Report 9778294 (Version 2)
Quarter: 2013Q4

REPORT INFORMATION
  Report Type: Spontaneous
  Country: DK (occurrence: DK)
  Receive Date: 20131223
  Receipt Date: 20131226
  Transmission Date: 20140711
  Serious: Yes (Disabling)
  Sender: FDA-Public Use
  Company Number: DK-JNJFOC-20131211383

PATIENT
  Sex: Male
  Weight: 74 kg

DRUGS (1)
  1. REMICADE [Suspect]
     Indication: ANKYLOSING SPONDYLITIS
     Dosage: THE DOSE WAS 400(UNIT UNSPECIFIED)
     Route: 042
     Dates: start: 20050827, end: 20121123

REACTIONS (2)
  - Haemoptysis [Unknown]
  - Interstitial lung disease [Not Recovered/Not Resolved]
